FAERS Safety Report 4399016-3 (Version None)
Quarter: 2004Q3

REPORT INFORMATION
  Report Type: 
  Country: None (occurrence: None)
  Receive Date: 20040715
  Receipt Date: 20040521
  Transmission Date: 20050211
  Serious: Yes (Death)
  Sender: FDA-Public Use
  Company Number: BE-MERCK-0405BEL00031

PATIENT
  Age: 76 Year
  Sex: Male
  Weight: 89 kg

DRUGS (3)
  1. AMPHOTERICIN B [Concomitant]
     Indication: TORULOPSIS INFECTION
     Route: 042
     Dates: start: 20040229, end: 20040301
  2. CANCIDAS [Suspect]
     Indication: TORULOPSIS INFECTION
     Route: 042
     Dates: start: 20040302, end: 20040315
  3. METHYLPREDNISOLONE [Concomitant]
     Route: 065
     Dates: start: 20040219, end: 20040320

REACTIONS (3)
  - RENAL FAILURE [None]
  - RESPIRATORY DISTRESS [None]
  - TORULOPSIS INFECTION [None]
